FAERS Safety Report 17486696 (Version 1)
Quarter: 2020Q1

REPORT INFORMATION
  Report Type: Spontaneous
  Country: US (occurrence: US)
  Receive Date: 20200219
  Receipt Date: 20200219
  Transmission Date: 20200409
  Serious: Yes (Life-Threatening, Hospitalization)
  Sender: FDA-Public Use
  Company Number: None

PATIENT
  Age: 83 Year
  Sex: Male

DRUGS (1)
  1. ESCITALOPRAM (ESCITALOPRAM OXALATE 20MG TAB) [Suspect]
     Active Substance: ESCITALOPRAM OXALATE
     Indication: DEPRESSION
     Route: 048
     Dates: start: 20130410, end: 20180511

REACTIONS (4)
  - Fall [None]
  - Muscle rigidity [None]
  - Serotonin syndrome [None]
  - Rhabdomyolysis [None]

NARRATIVE: CASE EVENT DATE: 20180511
